FAERS Safety Report 10727073 (Version 1)
Quarter: 2015Q1

REPORT INFORMATION
  Report Type: Spontaneous
  Country: DK (occurrence: DK)
  Receive Date: 20150121
  Receipt Date: 20150121
  Transmission Date: 20150721
  Serious: Yes (Hospitalization)
  Sender: FDA-Public Use
  Company Number: DK-WATSON-2015-00256

PATIENT
  Age: 56 Year
  Sex: Female

DRUGS (1)
  1. ALENDRONAT [Suspect]
     Active Substance: ALENDRONATE SODIUM
     Indication: OSTEOPOROSIS
     Dosage: 70 MG, 1/WEEK
     Route: 048
     Dates: start: 20110101

REACTIONS (2)
  - Osteonecrosis of jaw [Recovered/Resolved]
  - Sequestrectomy [Recovered/Resolved]

NARRATIVE: CASE EVENT DATE: 20140424
